FAERS Safety Report 6024838-2 (Version None)
Quarter: 2008Q4

REPORT INFORMATION
  Report Type: 
  Country: None (occurrence: None)
  Receive Date: 20081231
  Receipt Date: 20081226
  Transmission Date: 20090506
  Serious: Yes (Other)
  Sender: FDA-Public Use
  Company Number: US-BAYER-200814978BCC

PATIENT
  Age: 58 Year
  Sex: Male
  Weight: 136 kg

DRUGS (11)
  1. BAYER ASPIRIN WITH HEART ADVANTAGE [Suspect]
     Indication: PROPHYLAXIS
     Dates: start: 20080901
  2. ATENOLOL [Concomitant]
  3. LISINOPRIL [Concomitant]
  4. NIFEDIPINE [Concomitant]
  5. ALLOPURINOL [Concomitant]
  6. AMARYL [Concomitant]
  7. HYDROCHLOROTHIAZIDE [Concomitant]
  8. ATARAX [Concomitant]
  9. VITAMIN E [Concomitant]
  10. ASCORBIC ACID [Concomitant]
  11. METFORMIN HCL [Concomitant]

REACTIONS (1)
  - BLOOD GLUCOSE INCREASED [None]
